FAERS Safety Report 8814661 (Version 1)
Quarter: 2012Q4

REPORT INFORMATION
  Report Type: Spontaneous
  Country: US (occurrence: None)
  Receive Date: 20120926
  Receipt Date: 20120926
  Transmission Date: 20130627
  Serious: Yes (Death)
  Sender: FDA-Public Use
  Company Number: AMAG201203109

PATIENT
  Age: 98 Year
  Sex: Female
  Weight: 52.3 kg

DRUGS (10)
  1. FERAHEME [Suspect]
     Indication: IRON DEFICIENCY ANAEMIA
     Dosage: 300 mg, single, intravenous
     Route: 042
     Dates: start: 20120905, end: 20120905
  2. ALPHAGAN P (BRIMONIDINE TARTRATE) [Concomitant]
  3. ATENOLOL (ATENOLOL) [Concomitant]
  4. BUSPIRONE (BUSPIRONE) [Concomitant]
  5. FEROSOL (IRON) [Concomitant]
  6. LASIX (FUROSEMIDE) [Concomitant]
  7. LUMIGAN (BIMATOPROST) [Concomitant]
  8. BACITRACIN/NEOMYCIN/POLYMYXIN (BACITRACIN, NEOMYCIN, POLYMYXIN) [Concomitant]
  9. NEPRO PROTEIN DRINK (CARBOHYDRATES NOS, FATS NOS, MINERALS NOS, PROTEIN, VITAMINS NOS) [Concomitant]
  10. TYLENOL W/CODEINE NO. 3 (CODEINE PHOSPHATE, PARACETAMOL) [Concomitant]

REACTIONS (10)
  - Cardiogenic shock [None]
  - Nodal rhythm [None]
  - Acute myocardial infarction [None]
  - Unresponsive to stimuli [None]
  - Pulse absent [None]
  - Dyspnoea [None]
  - Pallor [None]
  - Cyanosis [None]
  - Hyperhidrosis [None]
  - Dizziness [None]
